FAERS Safety Report 5695964-2 (Version None)
Quarter: 2008Q2

REPORT INFORMATION
  Report Type: 
  Country: None (occurrence: None)
  Receive Date: 20080407
  Receipt Date: 20080327
  Transmission Date: 20081010
  Serious: Yes (Other)
  Sender: FDA-Public Use
  Company Number: FR-ASTRAZENECA-2007CG01806

PATIENT
  Age: 746 Month
  Sex: Male
  Weight: 76 kg

DRUGS (4)
  1. CASODEX [Suspect]
     Indication: PROSTATE CANCER
     Route: 048
     Dates: start: 20070101
  2. TARCEVA [Suspect]
     Indication: LUNG NEOPLASM MALIGNANT
     Route: 048
     Dates: start: 20061201
  3. XELODA [Suspect]
     Indication: LUNG NEOPLASM MALIGNANT
     Dosage: 6 TABLETS DAILY FIVE DAYS A WEEK
     Route: 048
     Dates: start: 20070101, end: 20070501
  4. DECAPEPTYL [Concomitant]
     Indication: PROSTATE CANCER
     Dates: start: 20070101

REACTIONS (2)
  - MYALGIA [None]
  - NEURALGIA [None]
